FAERS Safety Report 23068564 (Version 1)
Quarter: 2023Q4

REPORT INFORMATION
  Report Type: Spontaneous
  Country: US (occurrence: None)
  Receive Date: 20231013
  Receipt Date: 20231013
  Transmission Date: 20240109
  Serious: Yes (Life-Threatening, Hospitalization)
  Sender: FDA-Public Use
  Company Number: None

PATIENT
  Age: 74 Year
  Sex: Male

DRUGS (1)
  1. WARFARIN SODIUM [Suspect]
     Active Substance: WARFARIN SODIUM
     Dates: start: 20140812, end: 20230126

REACTIONS (10)
  - Mental status changes [None]
  - Subdural haematoma [None]
  - Cerebral mass effect [None]
  - Anticoagulation drug level above therapeutic [None]
  - Oesophageal stenosis [None]
  - Aggression [None]
  - Dysphagia [None]
  - Acute respiratory failure [None]
  - Pneumonia [None]
  - SARS-CoV-2 test positive [None]

NARRATIVE: CASE EVENT DATE: 20230115
